FAERS Safety Report 18713397 (Version 3)
Quarter: 2021Q4

REPORT INFORMATION
  Report Type: Spontaneous
  Country: US (occurrence: None)
  Receive Date: 20210107
  Receipt Date: 20211206
  Transmission Date: 20220303
  Serious: No
  Sender: FDA-Public Use
  Company Number: US-FRESENIUS KABI-FK202100192

PATIENT
  Age: 40 Year
  Sex: Female
  Weight: 77.1 kg

DRUGS (5)
  1. KETOROLAC [Suspect]
     Active Substance: KETOROLAC TROMETHAMINE
     Indication: Back pain
     Route: 030
     Dates: start: 202004, end: 202004
  2. KETOROLAC [Suspect]
     Active Substance: KETOROLAC TROMETHAMINE
     Route: 030
     Dates: start: 202004, end: 202004
  3. KETOROLAC [Suspect]
     Active Substance: KETOROLAC TROMETHAMINE
     Route: 030
     Dates: start: 201906, end: 201906
  4. KETOROLAC [Suspect]
     Active Substance: KETOROLAC TROMETHAMINE
     Route: 030
     Dates: start: 201906, end: 201906
  5. GABAPENTIN [Concomitant]
     Active Substance: GABAPENTIN
     Indication: Neuralgia
     Dosage: UNKNOWN
     Route: 065

REACTIONS (7)
  - Injection site indentation [Recovering/Resolving]
  - Injection site rash [Recovering/Resolving]
  - Pain in extremity [Recovering/Resolving]
  - Injection site erythema [Recovering/Resolving]
  - Injection site pruritus [Recovering/Resolving]
  - Injection site discolouration [Recovering/Resolving]
  - Injection site pain [Recovering/Resolving]

NARRATIVE: CASE EVENT DATE: 20200401
